FAERS Safety Report 5411198-0 (Version None)
Quarter: 2007Q3

REPORT INFORMATION
  Report Type: 
  Country: None (occurrence: None)
  Receive Date: 20070810
  Receipt Date: 20070809
  Transmission Date: 20080115
  Serious: Yes (Death)
  Sender: FDA-Public Use
  Company Number: A0669263A

PATIENT
  Age: 67 Year
  Sex: Male
  Weight: 58 kg

DRUGS (3)
  1. SERETIDE [Suspect]
     Indication: CHRONIC OBSTRUCTIVE PULMONARY DISEASE
     Route: 055
     Dates: start: 20070604, end: 20070804
  2. AMINOPHYLLINE [Concomitant]
     Dates: start: 20050101, end: 20070804
  3. FUROSEMIDE [Concomitant]
     Dates: start: 20050101, end: 20070804

REACTIONS (1)
  - PNEUMONIA [None]
